FAERS Safety Report 5776050-X (Version None)
Quarter: 2008Q2

REPORT INFORMATION
  Report Type: 
  Country: None (occurrence: None)
  Receive Date: 20080617
  Receipt Date: 20080609
  Transmission Date: 20081010
  Serious: Yes (Other)
  Sender: FDA-Public Use
  Company Number: JP-VALEANT-2008VX001281

PATIENT
  Age: 57 Year
  Sex: Male

DRUGS (2)
  1. PERMAX [Suspect]
     Route: 048
  2. MENESIT [Concomitant]
     Route: 065

REACTIONS (3)
  - BONE FISSURE [None]
  - SLEEP ATTACKS [None]
  - SOMNAMBULISM [None]
